FAERS Safety Report 11392463 (Version 1)
Quarter: 2015Q3

REPORT INFORMATION
  Report Type: Report from Study
  Country: BR (occurrence: BR)
  Receive Date: 20150818
  Receipt Date: 20150818
  Transmission Date: 20151125
  Serious: Yes (Other)
  Sender: FDA-Public Use
  Company Number: BR-GLAXOSMITHKLINE-BR2015GSK117527

PATIENT
  Sex: Female
  Weight: 69 kg

DRUGS (4)
  1. SALBUTAMOL SULPHATE [Suspect]
     Active Substance: ALBUTEROL SULFATE
     Indication: ASTHMA
     Dosage: 2 PUFF(S), BID
     Route: 055
     Dates: start: 201404, end: 201505
  2. FLUTICASONE PROPIONATE+SALMETEROL XINAFOATE [Suspect]
     Active Substance: FLUTICASONE PROPIONATE\SALMETEROL XINAFOATE
     Indication: EMPHYSEMA
     Dosage: 1 PUFF(S), BID
     Route: 055
     Dates: start: 201405, end: 201504
  3. FLUTICASONE PROPIONATE+SALMETEROL XINAFOATE [Suspect]
     Active Substance: FLUTICASONE PROPIONATE\SALMETEROL XINAFOATE
     Indication: LUNG NEOPLASM MALIGNANT
  4. SPIRIVA [Concomitant]
     Active Substance: TIOTROPIUM BROMIDE MONOHYDRATE
     Indication: EMPHYSEMA
     Dosage: 1 PUFF(S), QD
     Route: 055

REACTIONS (5)
  - Drug ineffective [Recovered/Resolved]
  - Heart rate increased [Recovered/Resolved]
  - Total lung capacity decreased [Recovered/Resolved]
  - Off label use [Unknown]
  - Fatigue [Unknown]
